FAERS Safety Report 12613561 (Version 1)
Quarter: 2016Q3

REPORT INFORMATION
  Report Type: Spontaneous
  Country: US (occurrence: None)
  Receive Date: 20160801
  Receipt Date: 20160801
  Transmission Date: 20161109
  Serious: Yes (Other)
  Sender: FDA-Public Use
  Company Number: None

PATIENT
  Age: 5 Year
  Sex: Female
  Weight: 15.42 kg

DRUGS (3)
  1. MULTIVITAMIN [Concomitant]
     Active Substance: VITAMINS
  2. MIRALAX [Suspect]
     Active Substance: POLYETHYLENE GLYCOL 3350
     Indication: CONSTIPATION
     Route: 048
  3. VITAMIN D3 [Concomitant]
     Active Substance: CHOLECALCIFEROL

REACTIONS (12)
  - Tremor [None]
  - Emotional disorder [None]
  - Aggression [None]
  - Feeling abnormal [None]
  - Paediatric autoimmune neuropsychiatric disorders associated with streptococcal infection [None]
  - Sensory disturbance [None]
  - Intentional product use issue [None]
  - Obsessive-compulsive disorder [None]
  - Eye movement disorder [None]
  - Constipation [None]
  - Tic [None]
  - Therapy cessation [None]

NARRATIVE: CASE EVENT DATE: 20160324
